FAERS Safety Report 9607035 (Version 1)
Quarter: 2013Q4

REPORT INFORMATION
  Report Type: Spontaneous
  Country: CA (occurrence: CA)
  Receive Date: 20131009
  Receipt Date: 20131009
  Transmission Date: 20140711
  Serious: Yes (Disabling)
  Sender: FDA-Public Use
  Company Number: CA-ASTRAZENECA-2013SE73174

PATIENT
  Age: 32 Year
  Sex: Male
  Weight: 79 kg

DRUGS (1)
  1. SYMBICORT TURBUHALER [Suspect]
     Dosage: 200, 1 DF, EVERYDAY
     Route: 055

REACTIONS (1)
  - Dyspepsia [Recovered/Resolved]
